FAERS Safety Report 17257683 (Version 2)
Quarter: 2021Q4

REPORT INFORMATION
  Report Type: Report from Study
  Country: DE (occurrence: DE)
  Receive Date: 20200110
  Receipt Date: 20211123
  Transmission Date: 20220303
  Serious: Yes (Hospitalization, Other)
  Sender: FDA-Public Use
  Company Number: DE-ACCORD-156748

PATIENT
  Sex: Female
  Weight: 65 kg

DRUGS (4)
  1. PEGFILGRASTIM [Suspect]
     Active Substance: PEGFILGRASTIM
     Indication: Product used for unknown indication
     Dosage: STRENGTH: 6 MG SECOND CYCLE
     Dates: start: 20190904
  2. PEGFILGRASTIM [Suspect]
     Active Substance: PEGFILGRASTIM
     Dosage: STRENGTH: 6 MG SECOND CYCLE
     Dates: start: 20190912
  3. EPIRUBICIN [Suspect]
     Active Substance: EPIRUBICIN
     Indication: Breast neoplasm
     Dosage: 157.5 MILLIGRAM
     Route: 042
     Dates: start: 20190903, end: 20190903
  4. CYCLOPHOSPHAMIDE [Suspect]
     Active Substance: CYCLOPHOSPHAMIDE
     Indication: Breast neoplasm
     Dosage: 1050 MILLIGRAM
     Route: 042
     Dates: start: 20190903, end: 20190903

REACTIONS (1)
  - Fatigue [Recovered/Resolved]

NARRATIVE: CASE EVENT DATE: 20190912
